FAERS Safety Report 7357191-2 (Version None)
Quarter: 2011Q1

REPORT INFORMATION
  Report Type: 
  Country: None (occurrence: None)
  Receive Date: 20110317
  Receipt Date: 20110311
  Transmission Date: 20110831
  Serious: No
  Sender: FDA-Public Use
  Company Number: US-PFIZER INC-2011054544

PATIENT

DRUGS (2)
  1. LUPRON [Concomitant]
     Dosage: UNK
  2. GENOTROPIN [Suspect]
     Dosage: UNK

REACTIONS (1)
  - DRUG INEFFECTIVE [None]
